FAERS Safety Report 8371096-X (Version None)
Quarter: 2012Q2

REPORT INFORMATION
  Report Type: 
  Country: None (occurrence: None)
  Receive Date: 20120518
  Receipt Date: 20120111
  Transmission Date: 20120825
  Serious: Yes (Other)
  Sender: FDA-Public Use
  Company Number: US-BRISTOL-MYERS SQUIBB COMPANY-16345928

PATIENT
  Age: 40 Year
  Sex: Male

DRUGS (3)
  1. BARACLUDE [Suspect]
  2. TENOFOVIR DISOPROXIL FUMARATE [Suspect]
  3. METFORMIN HCL [Concomitant]

REACTIONS (1)
  - LACTIC ACIDOSIS [None]
